FAERS Safety Report 10085249 (Version 2)
Quarter: 2014Q2

REPORT INFORMATION
  Report Type: Spontaneous
  Country: JP (occurrence: JP)
  Receive Date: 20140417
  Receipt Date: 20140417
  Transmission Date: 20141212
  Serious: Yes (Other)
  Sender: FDA-Public Use
  Company Number: PHHY2014JP044377

PATIENT
  Age: 71 Year
  Sex: Female

DRUGS (5)
  1. DOCETAXEL SANDOZ [Suspect]
     Indication: LUNG NEOPLASM MALIGNANT
     Dosage: 90 MG, UNK
     Route: 042
     Dates: start: 20140205, end: 20140205
  2. DOCETAXEL SANDOZ [Suspect]
     Dosage: 90 MG, UNK
     Route: 042
     Dates: start: 20140306, end: 20140306
  3. DOCETAXEL SANDOZ [Suspect]
     Dosage: 90 MG, UNK
     Route: 042
     Dates: start: 20140403, end: 20140403
  4. DECADRAN [Concomitant]
     Dosage: 6.6 MG, UNK
     Route: 042
  5. SOLDEM 1 [Concomitant]

REACTIONS (3)
  - Vasculitis [Not Recovered/Not Resolved]
  - Infusion site discolouration [Unknown]
  - Vessel puncture site swelling [Unknown]
